FAERS Safety Report 12661453 (Version 3)
Quarter: 2016Q3

REPORT INFORMATION
  Report Type: Report from Study
  Country: US (occurrence: US)
  Receive Date: 20160817
  Receipt Date: 20160912
  Transmission Date: 20161109
  Serious: Yes (Death, Hospitalization)
  Sender: FDA-Public Use
  Company Number: PHEH2016US020518

PATIENT
  Sex: Male

DRUGS (2)
  1. JADENU [Suspect]
     Active Substance: DEFERASIROX
     Indication: MYELODYSPLASTIC SYNDROME
  2. JADENU [Suspect]
     Active Substance: DEFERASIROX
     Indication: REFRACTORY ANAEMIA WITH AN EXCESS OF BLASTS
     Dosage: UNK
     Route: 065
     Dates: end: 20160525

REACTIONS (4)
  - Pneumonia [Fatal]
  - Febrile neutropenia [Fatal]
  - Renal failure [Fatal]
  - Sepsis [Fatal]
